FAERS Safety Report 4791816-0 (Version None)
Quarter: 2005Q4

REPORT INFORMATION
  Report Type: 
  Country: None (occurrence: None)
  Receive Date: 20051005
  Receipt Date: 20050923
  Transmission Date: 20060501
  Serious: Yes (Death, Hospitalization)
  Sender: FDA-Public Use
  Company Number: A-CH2005-10656

PATIENT
  Age: 84 Year
  Sex: Male
  Weight: 82 kg

DRUGS (8)
  1. TRACLEER [Suspect]
     Indication: PULMONARY HYPERTENSION
     Dosage: 125 MG, BID, ORAL
     Route: 048
     Dates: start: 20050527, end: 20050628
  2. TRACLEER [Suspect]
     Indication: PULMONARY HYPERTENSION
     Dosage: 125 MG, BID, ORAL
     Route: 048
     Dates: start: 20050629, end: 20050729
  3. PROSCAR [Concomitant]
  4. LASIX [Concomitant]
  5. PLAVIX [Concomitant]
  6. CORUNO [Concomitant]
  7. NITRODERM [Concomitant]
  8. COVERSYL (PERINDOPRIL) [Concomitant]

REACTIONS (4)
  - DYSPNOEA EXACERBATED [None]
  - HYPOXIA [None]
  - RENAL FAILURE [None]
  - RIGHT VENTRICULAR FAILURE [None]
